FAERS Safety Report 23526767 (Version 1)
Quarter: 2024Q1

REPORT INFORMATION
  Report Type: Spontaneous
  Country: US (occurrence: US)
  Receive Date: 20240215
  Receipt Date: 20240215
  Transmission Date: 20240409
  Serious: No
  Sender: FDA-Public Use
  Company Number: US-BAYER-2024A022762

PATIENT
  Age: 65 Year
  Sex: Male

DRUGS (4)
  1. CLARITIN REDITABS [Suspect]
     Active Substance: LORATADINE
     Indication: Allergic respiratory symptom
     Dosage: 2 DF, QD
     Route: 048
     Dates: end: 20240208
  2. CLARITIN REDITABS [Suspect]
     Active Substance: LORATADINE
     Indication: Nasopharyngitis
  3. HIGH BLOOD PRESSURURE [Concomitant]
  4. CHOLESTEROL [Concomitant]
     Active Substance: CHOLESTEROL

REACTIONS (3)
  - Sticky skin [Unknown]
  - Extra dose administered [Unknown]
  - Feeling abnormal [Unknown]

NARRATIVE: CASE EVENT DATE: 20240208
